FAERS Safety Report 6304239-X (Version None)
Quarter: 2009Q3

REPORT INFORMATION
  Report Type: 
  Country: None (occurrence: None)
  Receive Date: 20090811
  Receipt Date: 20090730
  Transmission Date: 20100115
  Serious: Yes (Hospitalization, Other)
  Sender: FDA-Public Use
  Company Number: US-JNJFOC-20090710026

PATIENT
  Sex: Male
  Weight: 149.69 kg

DRUGS (41)
  1. REMICADE [Suspect]
     Dosage: TOTAL OF 49 INFUSIONS
     Route: 042
  2. REMICADE [Suspect]
     Indication: CROHN'S DISEASE
     Dosage: 47 INFUSIONS
     Route: 042
  3. REMICADE [Suspect]
     Indication: RHEUMATOID ARTHRITIS
     Route: 042
  4. PREDNISONE [Suspect]
     Route: 048
  5. PREDNISONE [Suspect]
     Indication: DRUG USE FOR UNKNOWN INDICATION
     Route: 048
  6. METHOTREXATE [Suspect]
     Indication: DRUG USE FOR UNKNOWN INDICATION
     Route: 048
  7. CENTRUM MULTIVITAMINS [Concomitant]
     Route: 048
  8. METAMUCIL [Concomitant]
  9. NYSTATIN [Concomitant]
     Route: 048
  10. LIDEX [Concomitant]
     Route: 061
  11. DECADRON [Concomitant]
  12. ZYRTEC-D 12 HOUR [Concomitant]
  13. MUCINEX [Concomitant]
  14. ANDROGEL [Concomitant]
     Route: 062
  15. LIDODERM [Concomitant]
  16. SOLU-MEDROL [Concomitant]
  17. ACETAMINOPHEN AND HYDROCODONE BITARTRATE [Concomitant]
     Route: 048
  18. FLUCONAZOLE [Concomitant]
     Route: 048
  19. FOLIC ACID [Concomitant]
     Route: 048
  20. AMBIEN CR [Concomitant]
     Route: 048
  21. ACIPHEX [Concomitant]
     Route: 048
  22. CYCLOBENZAPRINE HCL [Concomitant]
     Indication: MUSCLE SPASMS
     Route: 048
  23. CYMBALTA [Concomitant]
     Route: 048
  24. FUROSEMIDE [Concomitant]
     Route: 048
  25. LISINOPRIL [Concomitant]
     Route: 048
  26. MINOCYCLINE [Concomitant]
     Route: 048
  27. MINOCYCLINE [Concomitant]
     Route: 048
  28. POTASSIUM CHLORIDE [Concomitant]
     Route: 048
  29. ADVAIR HFA [Concomitant]
     Route: 055
  30. ALBUTEROL [Concomitant]
     Route: 055
  31. ENTOCORT EC [Concomitant]
     Route: 048
  32. VOLTAREN [Concomitant]
     Route: 061
  33. COUMADIN [Concomitant]
     Route: 048
  34. COUMADIN [Concomitant]
     Route: 048
  35. METOCLOPRAMIDE HCL [Concomitant]
     Route: 048
  36. REPLIVA [Concomitant]
     Route: 048
  37. SULFASALAZINE [Concomitant]
     Route: 048
  38. VENOFER [Concomitant]
     Route: 042
  39. SOLU-CORTEF [Concomitant]
     Indication: PREMEDICATION
     Route: 042
  40. SULFASALAZINE [Concomitant]
     Route: 048
  41. SULFASALAZINE [Concomitant]
     Route: 048

REACTIONS (5)
  - CUSHINGOID [None]
  - FATIGUE [None]
  - HISTOPLASMOSIS [None]
  - SMALL INTESTINAL OBSTRUCTION [None]
  - VISUAL IMPAIRMENT [None]
